FAERS Safety Report 8974779 (Version 3)
Quarter: 2013Q1

REPORT INFORMATION
  Report Type: Report from Study
  Country: JP (occurrence: JP)
  Receive Date: 20121219
  Receipt Date: 20130320
  Transmission Date: 20140127
  Serious: Yes (Death, Life-Threatening)
  Sender: FDA-Public Use
  Company Number: JP-UCBSA-073335

PATIENT
  Age: 63 Year
  Sex: Male
  Weight: 45.8 kg

DRUGS (7)
  1. E KEPPRA [Suspect]
     Indication: SIMPLE PARTIAL SEIZURES
     Route: 048
     Dates: start: 20120222, end: 20120227
  2. DEPAKENE [Concomitant]
     Indication: SIMPLE PARTIAL SEIZURES
     Dosage: DAILY DOSE: 100 MG
     Route: 048
     Dates: start: 20120222, end: 2012
  3. GASTER [Concomitant]
     Route: 048
     Dates: end: 20120227
  4. MUCODYNE [Concomitant]
     Route: 048
     Dates: end: 20120227
  5. LENDORMIN D [Concomitant]
     Route: 048
     Dates: end: 20120227
  6. BIOFERMIN [Concomitant]
     Route: 048
     Dates: end: 20120227
  7. MAGMITT [Concomitant]
     Route: 048
     Dates: end: 20120227

REACTIONS (2)
  - Arrhythmia [Fatal]
  - Pharyngeal cancer [Not Recovered/Not Resolved]
